FAERS Safety Report 15203525 (Version 1)
Quarter: 2018Q3

REPORT INFORMATION
  Report Type: Spontaneous
  Country: US (occurrence: US)
  Receive Date: 20180627
  Receipt Date: 20180627
  Transmission Date: 20181010
  Serious: Yes (Other)
  Sender: FDA-Public Use
  Company Number: None

PATIENT
  Age: 69 Year
  Sex: Female
  Weight: 71.1 kg

DRUGS (12)
  1. ROSUVASTATIN. [Concomitant]
     Active Substance: ROSUVASTATIN
  2. ESCITALOPRAM [Concomitant]
     Active Substance: ESCITALOPRAM OXALATE
  3. VESICARE [Suspect]
     Active Substance: SOLIFENACIN SUCCINATE
     Indication: INCONTINENCE
     Dosage: ?          QUANTITY:30 TABLET(S);?
     Route: 048
     Dates: start: 20180619, end: 20180627
  4. CITRACAL SLOW RELEASE [Concomitant]
  5. BIOTIN [Concomitant]
     Active Substance: BIOTIN
  6. TELSMISARTAN [Concomitant]
  7. ASPIRIN. [Concomitant]
     Active Substance: ASPIRIN
  8. VITAMIN D3 [Concomitant]
     Active Substance: CHOLECALCIFEROL
  9. FOLGARD OS [Concomitant]
     Active Substance: CALCIUM\CHOLECALCIFEROL\CYANOCOBALAMIN\FOLIC ACID\MAGNESIUM\PHOSPHORUS\PYRIDOXINE\RIBOFLAVIN
  10. LOVAZA [Concomitant]
     Active Substance: OMEGA-3-ACID ETHYL ESTERS
  11. WELCHOL [Concomitant]
     Active Substance: COLESEVELAM HYDROCHLORIDE
  12. COQ10 [Concomitant]
     Active Substance: UBIDECARENONE

REACTIONS (3)
  - Depression [None]
  - Crying [None]
  - Depressed mood [None]

NARRATIVE: CASE EVENT DATE: 20180619
